FAERS Safety Report 25190656 (Version 1)
Quarter: 2025Q2

REPORT INFORMATION
  Report Type: Spontaneous
  Country: US (occurrence: US)
  Receive Date: 20250411
  Receipt Date: 20250411
  Transmission Date: 20250717
  Serious: No
  Sender: TAIHO ONCOLOGY INC
  Company Number: US-TAIHOP-2025-003539

PATIENT
  Sex: Male
  Weight: 60.33 kg

DRUGS (1)
  1. LONSURF [Suspect]
     Active Substance: TIPIRACIL HYDROCHLORIDE\TRIFLURIDINE
     Indication: Colon cancer
     Dosage: CYCLE UNKNOWN
     Route: 048

REACTIONS (5)
  - Oral pain [Unknown]
  - Diarrhoea [Unknown]
  - Blister rupture [Unknown]
  - Stomatitis [Unknown]
  - Inappropriate schedule of product administration [Unknown]
